FAERS Safety Report 7471801-0 (Version None)
Quarter: 2011Q2

REPORT INFORMATION
  Report Type: 
  Country: None (occurrence: None)
  Receive Date: 20110511
  Receipt Date: 20100506
  Transmission Date: 20111010
  Serious: No
  Sender: FDA-Public Use
  Company Number: A0859993A

PATIENT
  Sex: Female

DRUGS (2)
  1. TYKERB [Suspect]
     Dosage: 1250MG PER DAY
     Route: 048
     Dates: start: 20100403
  2. XELODA [Suspect]
     Route: 065

REACTIONS (6)
  - SKIN HYPERPIGMENTATION [None]
  - FATIGUE [None]
  - NAUSEA [None]
  - HYPERSOMNIA [None]
  - SLEEP DISORDER [None]
  - CONSTIPATION [None]
